FAERS Safety Report 15364789 (Version 1)
Quarter: 2018Q3

REPORT INFORMATION
  Report Type: Spontaneous
  Country: RO (occurrence: RO)
  Receive Date: 20180910
  Receipt Date: 20180910
  Transmission Date: 20181010
  Serious: Yes (Other)
  Sender: FDA-Public Use
  Company Number: RO-ROCHE-2180252

PATIENT
  Age: 63 Year
  Sex: Female
  Weight: 62 kg

DRUGS (3)
  1. MABTHERA [Suspect]
     Active Substance: RITUXIMAB
     Indication: RHEUMATOID ARTHRITIS
     Dosage: EVERY 14 DAYS, AT SIX MONTHS
     Route: 042
     Dates: start: 20100222, end: 20161207
  2. METHOTREXATE. [Concomitant]
     Active Substance: METHOTREXATE
     Indication: RHEUMATOID ARTHRITIS
     Route: 048
     Dates: start: 20100115, end: 20170615
  3. ELIQUIS [Concomitant]
     Active Substance: APIXABAN
     Dosage: 5 MG/2 TABLETS
     Route: 065

REACTIONS (3)
  - Pyrexia [Recovered/Resolved]
  - Pulmonary fibrosis [Recovering/Resolving]
  - Peripheral arterial occlusive disease [Not Recovered/Not Resolved]

NARRATIVE: CASE EVENT DATE: 2016
